FAERS Safety Report 10178516 (Version 1)
Quarter: 2014Q2

REPORT INFORMATION
  Report Type: Spontaneous
  Country: US (occurrence: None)
  Receive Date: 20140516
  Receipt Date: 20140516
  Transmission Date: 20141212
  Serious: Yes (Hospitalization)
  Sender: FDA-Public Use
  Company Number: None

PATIENT
  Age: 70 Year
  Sex: Male
  Weight: 86 kg

DRUGS (18)
  1. IPILIMUMAB [Suspect]
     Indication: MALIGNANT MELANOMA
     Dosage: 3 MG.KG EVERY 3 WKS X4; IV
     Dates: start: 20140226, end: 20140319
  2. RADIATION THERAPY [Suspect]
     Dosage: CGY
     Dates: start: 20140224
  3. LOPERAMIDE HCL (IMODIUM PO) [Concomitant]
  4. FLUCONAZOLE [Concomitant]
  5. CHOLECALCIFEROL [Concomitant]
  6. ERGOCALCIFEROL [Concomitant]
  7. LEVETIRACETAM [Concomitant]
  8. DEXAMETHASONE [Concomitant]
  9. CETIRIZINE [Concomitant]
  10. IBUPROFEN [Concomitant]
  11. IPILIMUMAB [Concomitant]
  12. OSU-12118 [Concomitant]
  13. ASPIRIN [Concomitant]
  14. CLOPIDOGREL (PLAVIX) [Concomitant]
  15. LOSARTAN [Concomitant]
  16. ATORVASTATIN [Concomitant]
  17. METOPROLOL SUCCINATE [Concomitant]
  18. OMEPRAZOLE [Concomitant]

REACTIONS (16)
  - Fatigue [None]
  - Feeling abnormal [None]
  - Activities of daily living impaired [None]
  - Fall [None]
  - Productive cough [None]
  - Abasia [None]
  - Asthenia [None]
  - Decreased appetite [None]
  - Visual impairment [None]
  - Diarrhoea [None]
  - Abdominal distension [None]
  - Dizziness [None]
  - Dehydration [None]
  - Hypophagia [None]
  - Malignant neoplasm progression [None]
  - Hypophysitis [None]
